FAERS Safety Report 6215666-3 (Version None)
Quarter: 2009Q2

REPORT INFORMATION
  Report Type: 
  Country: None (occurrence: None)
  Receive Date: 20090605
  Receipt Date: 20090529
  Transmission Date: 20091009
  Serious: Yes (Disabling, Other)
  Sender: FDA-Public Use
  Company Number: PHHY2009AR21151

PATIENT
  Sex: Female

DRUGS (2)
  1. LIORESAL [Suspect]
     Indication: MUSCLE SPASTICITY
     Dosage: UNK
  2. LIORESAL [Suspect]
     Dosage: UNK
     Dates: start: 20090529

REACTIONS (2)
  - ABASIA [None]
  - DRUG INEFFECTIVE [None]
